FAERS Safety Report 23335112 (Version 3)
Quarter: 2024Q1

REPORT INFORMATION
  Report Type: Spontaneous
  Country: DE (occurrence: DE)
  Receive Date: 20231225
  Receipt Date: 20240215
  Transmission Date: 20240410
  Serious: Yes (Hospitalization, Other)
  Sender: FDA-Public Use
  Company Number: DE-BRISTOL-MYERS SQUIBB COMPANY-2023-164403

PATIENT
  Age: 60 Year
  Sex: Male
  Weight: 65 kg

DRUGS (14)
  1. OXALIPLATIN [Suspect]
     Active Substance: OXALIPLATIN
     Indication: Oesophageal adenocarcinoma
     Dosage: 156 MILLIGRAM,*BIWEEKLY
     Route: 042
     Dates: start: 20231018
  2. CISPLATIN [Suspect]
     Active Substance: CISPLATIN
     Indication: Oesophageal carcinoma
     Dosage: 156 MILLIGRAM,*BIWEEKLY
     Route: 042
     Dates: start: 20231018
  3. FLUOROURACIL [Suspect]
     Active Substance: FLUOROURACIL
     Indication: Oesophageal carcinoma
     Dosage: 4775 MILLIGRAM,*BIWEEKLY
     Route: 042
     Dates: start: 20231018
  4. OPDIVO [Suspect]
     Active Substance: NIVOLUMAB
     Indication: Oesophageal carcinoma
     Dosage: 240 MILLIGRAM,*BIWEEKLY
     Route: 042
     Dates: start: 20231102
  5. PANTOPRAZOLE SODIUM [Concomitant]
     Active Substance: PANTOPRAZOLE SODIUM
     Indication: Prophylaxis
     Dosage: 40 MILLIGRAM, ONCE A DAY,ONGOING
     Route: 048
     Dates: start: 20230531
  6. PREDNISOLONE [Concomitant]
     Active Substance: PREDNISOLONE
     Indication: Prophylaxis
     Dosage: 50 MILLIGRAM, ONCE A DAY
     Route: 048
     Dates: start: 20231108, end: 20231110
  7. PREDNISOLONE [Concomitant]
     Active Substance: PREDNISOLONE
     Dosage: 25 MILLIGRAM, ONCE A DAY
     Route: 048
     Dates: start: 20231111, end: 20231113
  8. NALOXONE HYDROCHLORIDE\TILIDINE HYDROCHLORIDE [Concomitant]
     Active Substance: NALOXONE HYDROCHLORIDE\TILIDINE HYDROCHLORIDE
     Indication: Product used for unknown indication
     Dosage: 100 MILLIGRAM,ONGOING
     Route: 048
     Dates: start: 20230928
  9. METAMIZOLE [Concomitant]
     Active Substance: METAMIZOLE
     Indication: Product used for unknown indication
     Dosage: 500 MILLIGRAM,ONGOING
     Route: 048
     Dates: start: 20230531
  10. METOCLOPRAMIDE HYDROCHLORIDE [Concomitant]
     Active Substance: METOCLOPRAMIDE HYDROCHLORIDE
     Indication: Prophylaxis
     Dosage: 10 MILLIGRAM
     Route: 048
     Dates: start: 20230619, end: 20231102
  11. METOCLOPRAMIDE HYDROCHLORIDE [Concomitant]
     Active Substance: METOCLOPRAMIDE HYDROCHLORIDE
     Dosage: 30 MILLIGRAM, ONCE A DAY
     Route: 048
     Dates: start: 20231120
  12. ONDANSETRON [Concomitant]
     Active Substance: ONDANSETRON
     Indication: Prophylaxis
     Dosage: 5 MILLIGRAM
     Route: 042
     Dates: start: 20230613, end: 20231102
  13. ONDANSETRON [Concomitant]
     Active Substance: ONDANSETRON
     Dosage: 8 MILLIGRAM, ONCE A DAY
     Route: 042
     Dates: start: 20231120
  14. FENTANYL [Concomitant]
     Active Substance: FENTANYL\FENTANYL CITRATE
     Indication: Product used for unknown indication
     Dosage: 25 MICROGRAM, EVERY HOUR
     Route: 065
     Dates: start: 20231215

REACTIONS (9)
  - Oesophageal stenosis [Recovered/Resolved]
  - Pleural effusion [Recovered/Resolved]
  - Infection [Recovered/Resolved]
  - Mediastinitis [Unknown]
  - Decreased appetite [Not Recovered/Not Resolved]
  - Nausea [Not Recovered/Not Resolved]
  - Leukocytosis [Not Recovered/Not Resolved]
  - Anaemia [Not Recovered/Not Resolved]
  - Oesophagitis [Unknown]

NARRATIVE: CASE EVENT DATE: 20231108
